FAERS Safety Report 8781141 (Version 1)
Quarter: 2012Q4

REPORT INFORMATION
  Report Type: 
  Country: US (occurrence: US)
  Receive Date: 20120913
  Receipt Date: 20120913
  Transmission Date: 20130627
  Serious: Yes (Death, Congenital Anomaly, Other)
  Sender: FDA-Public Use
  Company Number: US-009507513-1007USA01498B1

PATIENT
  Age: 0 Year
  Sex: Male
  Weight: .83 kg

DRUGS (9)
  1. ISENTRESS [Suspect]
     Indication: ACQUIRED IMMUNODEFICIENCY SYNDROME
     Dosage: 800 mg, qd
     Route: 064
     Dates: end: 20100323
  2. PREZISTA [Concomitant]
     Indication: ACQUIRED IMMUNODEFICIENCY SYNDROME
     Dosage: 1200 mg, qd
     Route: 064
     Dates: start: 20090101, end: 20091201
  3. PREZISTA [Concomitant]
     Dosage: 1200 mg, qd
     Route: 064
     Dates: end: 20100514
  4. NORVIR [Concomitant]
     Indication: ACQUIRED IMMUNODEFICIENCY SYNDROME
     Dosage: 200 mg, qd
     Route: 064
  5. EMTRIVA [Concomitant]
     Indication: ACQUIRED IMMUNODEFICIENCY SYNDROME
     Dosage: 200 mg, qd
     Route: 064
     Dates: end: 20100323
  6. KALETRA [Suspect]
     Indication: ACQUIRED IMMUNODEFICIENCY SYNDROME
     Dosage: 4 DF, qd
     Route: 064
     Dates: start: 20100324, end: 20100513
  7. VIREAD [Suspect]
     Route: 064
     Dates: start: 20100324, end: 20100513
  8. COMBIVIR [Suspect]
     Indication: ACQUIRED IMMUNODEFICIENCY SYNDROME
     Dosage: 2 DF, UNK
     Route: 064
     Dates: start: 20100514
  9. REYATAZ [Suspect]
     Route: 064

REACTIONS (3)
  - Stillbirth [Fatal]
  - Trisomy 21 [Fatal]
  - Foetal exposure during pregnancy [Fatal]
